FAERS Safety Report 5674137-3 (Version None)
Quarter: 2008Q1

REPORT INFORMATION
  Report Type: 
  Country: None (occurrence: None)
  Receive Date: 20080320
  Receipt Date: 20080305
  Transmission Date: 20080703
  Serious: Yes (Other)
  Sender: FDA-Public Use
  Company Number: AT-TEVA-168442ISR

PATIENT
  Age: 5 Year
  Sex: Male

DRUGS (3)
  1. CARBOPLATIN [Suspect]
  2. ETOPOSIDE [Suspect]
  3. MELPHALAN [Suspect]

REACTIONS (1)
  - CRYPTOGENIC ORGANISING PNEUMONIA [None]
